FAERS Safety Report 4660402-5 (Version None)
Quarter: 2005Q2

REPORT INFORMATION
  Report Type: 
  Country: None (occurrence: None)
  Receive Date: 20050512
  Receipt Date: 20050502
  Transmission Date: 20051028
  Serious: Yes (Other)
  Sender: FDA-Public Use
  Company Number: 200513736US

PATIENT
  Sex: 0

DRUGS (1)
  1. KETEK [Suspect]
     Indication: SINUS OPERATION
     Route: 048

REACTIONS (1)
  - VASCULITIS [None]
